FAERS Safety Report 20829916 (Version 10)
Quarter: 2023Q2

REPORT INFORMATION
  Report Type: Report from Study
  Country: JP (occurrence: JP)
  Receive Date: 20220513
  Receipt Date: 20230525
  Transmission Date: 20230722
  Serious: Yes (Other)
  Sender: FDA-Public Use
  Company Number: JP-TAKEDA-2021TJP141976

PATIENT
  Age: 64 Year
  Sex: Male

DRUGS (157)
  1. LEUPROLIDE ACETATE [Suspect]
     Active Substance: LEUPROLIDE ACETATE
     Indication: Bulbospinal muscular atrophy congenital
     Dosage: 11.25 MILLIGRAM, Q3MONTHS
     Route: 058
     Dates: start: 20171019
  2. BETAHISTINE MESILATE [Concomitant]
     Active Substance: BETAHISTINE MESILATE
     Indication: Vertigo
     Dosage: 6 MILLIGRAM
     Route: 065
     Dates: start: 20190821, end: 20190904
  3. SODIUM CHLORIDE [Concomitant]
     Active Substance: SODIUM CHLORIDE
     Indication: Aspiration
     Dosage: 20 MILLILITER
     Route: 050
     Dates: start: 20191107
  4. SODIUM CHLORIDE [Concomitant]
     Active Substance: SODIUM CHLORIDE
     Indication: Aspiration
     Dosage: 9 GRAM
     Route: 065
     Dates: end: 20171101
  5. SODIUM CHLORIDE [Concomitant]
     Active Substance: SODIUM CHLORIDE
     Indication: Aspiration
     Dosage: 7.5 MILLILITER
     Route: 050
     Dates: end: 20190801
  6. SODIUM CHLORIDE [Concomitant]
     Active Substance: SODIUM CHLORIDE
     Indication: Aspiration
     Dosage: 3 GRAM
     Route: 065
     Dates: start: 20171116, end: 20180214
  7. SODIUM CHLORIDE [Concomitant]
     Active Substance: SODIUM CHLORIDE
     Indication: Aspiration
     Dosage: 42 GRAM
     Route: 065
     Dates: start: 20200716
  8. LANSOPRAZOLE [Concomitant]
     Active Substance: LANSOPRAZOLE
     Indication: Prophylaxis against gastrointestinal ulcer
     Dosage: 15 MILLIGRAM
     Route: 065
  9. BREDININ OD [Concomitant]
     Indication: Product used for unknown indication
     Dosage: 150 MILLIGRAM
     Route: 065
  10. ONEALFA [Concomitant]
     Active Substance: ALFACALCIDOL
     Indication: Osteoporosis prophylaxis
     Dosage: 0.5 MICROGRAM
     Route: 065
  11. MIYA-BM [Concomitant]
     Active Substance: CLOSTRIDIUM BUTYRICUM SPORES STRAIN M-55
     Indication: Prophylaxis against gastrointestinal ulcer
     Dosage: 3 GRAM
     Route: 065
     Dates: end: 20180516
  12. BROTIZOLAM [Concomitant]
     Active Substance: BROTIZOLAM
     Indication: Insomnia
     Dosage: 0.25 MILLIGRAM
     Route: 065
  13. AMBROXOL HYDROCHLORIDE [Concomitant]
     Active Substance: AMBROXOL HYDROCHLORIDE
     Indication: Bulbospinal muscular atrophy congenital
     Dosage: 45 MILLIGRAM
     Route: 065
  14. AMBROXOL HYDROCHLORIDE [Concomitant]
     Active Substance: AMBROXOL HYDROCHLORIDE
     Indication: Bulbospinal muscular atrophy congenital
  15. AMBROXOL HYDROCHLORIDE [Concomitant]
     Active Substance: AMBROXOL HYDROCHLORIDE
     Indication: Bulbospinal muscular atrophy congenital
  16. AMBROXOL HYDROCHLORIDE [Concomitant]
     Active Substance: AMBROXOL HYDROCHLORIDE
     Indication: Bulbospinal muscular atrophy congenital
  17. AMBROXOL HYDROCHLORIDE [Concomitant]
     Active Substance: AMBROXOL HYDROCHLORIDE
     Indication: Bulbospinal muscular atrophy congenital
  18. AMBROXOL HYDROCHLORIDE [Concomitant]
     Active Substance: AMBROXOL HYDROCHLORIDE
     Indication: Bulbospinal muscular atrophy congenital
  19. AMBROXOL HYDROCHLORIDE [Concomitant]
     Active Substance: AMBROXOL HYDROCHLORIDE
     Indication: Bulbospinal muscular atrophy congenital
  20. AMBROXOL HYDROCHLORIDE [Concomitant]
     Active Substance: AMBROXOL HYDROCHLORIDE
     Indication: Bulbospinal muscular atrophy congenital
  21. CARBOCYSTEINE [Concomitant]
     Active Substance: CARBOCYSTEINE
     Indication: Bulbospinal muscular atrophy congenital
     Dosage: 3 GRAM
     Route: 065
     Dates: end: 20200820
  22. CARBOCYSTEINE [Concomitant]
     Active Substance: CARBOCYSTEINE
     Indication: Bulbospinal muscular atrophy congenital
  23. CARBOCYSTEINE [Concomitant]
     Active Substance: CARBOCYSTEINE
     Indication: Bulbospinal muscular atrophy congenital
  24. CARBOCYSTEINE [Concomitant]
     Active Substance: CARBOCYSTEINE
     Indication: Bulbospinal muscular atrophy congenital
  25. CARBOCYSTEINE [Concomitant]
     Active Substance: CARBOCYSTEINE
     Indication: Bulbospinal muscular atrophy congenital
  26. CARBOCYSTEINE [Concomitant]
     Active Substance: CARBOCYSTEINE
     Indication: Bulbospinal muscular atrophy congenital
  27. CARBOCYSTEINE [Concomitant]
     Active Substance: CARBOCYSTEINE
     Indication: Bulbospinal muscular atrophy congenital
  28. CARBOCYSTEINE [Concomitant]
     Active Substance: CARBOCYSTEINE
     Indication: Bulbospinal muscular atrophy congenital
  29. AMINO ACIDS\DEXTROSE\ELECTROLYTES NOS\SOYBEAN OIL\VITAMINS [Concomitant]
     Active Substance: AMINO ACIDS\DEXTROSE\ELECTROLYTES NOS\SOYBEAN OIL\VITAMINS
     Indication: Bulbospinal muscular atrophy congenital
     Dosage: 1600 MILLILITER
     Route: 050
     Dates: end: 20171206
  30. AMINO ACIDS\DEXTROSE\ELECTROLYTES NOS\SOYBEAN OIL\VITAMINS [Concomitant]
     Active Substance: AMINO ACIDS\DEXTROSE\ELECTROLYTES NOS\SOYBEAN OIL\VITAMINS
     Indication: Bulbospinal muscular atrophy congenital
     Dosage: 1000 MILLILITER
     Route: 050
     Dates: start: 20171221, end: 20180404
  31. AMINO ACIDS\DEXTROSE\ELECTROLYTES NOS\SOYBEAN OIL\VITAMINS [Concomitant]
     Active Substance: AMINO ACIDS\DEXTROSE\ELECTROLYTES NOS\SOYBEAN OIL\VITAMINS
     Indication: Bulbospinal muscular atrophy congenital
     Dosage: 2000 MILLILITER
     Route: 050
     Dates: start: 20180405, end: 20180418
  32. AMINO ACIDS\DEXTROSE\ELECTROLYTES NOS\SOYBEAN OIL\VITAMINS [Concomitant]
     Active Substance: AMINO ACIDS\DEXTROSE\ELECTROLYTES NOS\SOYBEAN OIL\VITAMINS
     Indication: Bulbospinal muscular atrophy congenital
     Dosage: 1400 MILLILITER
     Route: 050
     Dates: start: 20180419, end: 20180506
  33. AMINO ACIDS\DEXTROSE\ELECTROLYTES NOS\SOYBEAN OIL\VITAMINS [Concomitant]
     Active Substance: AMINO ACIDS\DEXTROSE\ELECTROLYTES NOS\SOYBEAN OIL\VITAMINS
     Indication: Bulbospinal muscular atrophy congenital
     Dosage: 1000 MILLILITER
     Route: 050
     Dates: start: 20180621, end: 20190620
  34. AMINO ACIDS\DEXTROSE\ELECTROLYTES NOS\SOYBEAN OIL\VITAMINS [Concomitant]
     Active Substance: AMINO ACIDS\DEXTROSE\ELECTROLYTES NOS\SOYBEAN OIL\VITAMINS
     Indication: Bulbospinal muscular atrophy congenital
     Dosage: 200 MILLILITER
     Route: 050
     Dates: start: 20191219, end: 20200206
  35. AMINO ACIDS\DEXTROSE\ELECTROLYTES NOS\SOYBEAN OIL\VITAMINS [Concomitant]
     Active Substance: AMINO ACIDS\DEXTROSE\ELECTROLYTES NOS\SOYBEAN OIL\VITAMINS
     Indication: Bulbospinal muscular atrophy congenital
     Dosage: 600 GRAM
     Route: 050
     Dates: start: 20171118, end: 20191017
  36. AMINO ACIDS\DEXTROSE\ELECTROLYTES NOS\SOYBEAN OIL\VITAMINS [Concomitant]
     Active Substance: AMINO ACIDS\DEXTROSE\ELECTROLYTES NOS\SOYBEAN OIL\VITAMINS
     Indication: Bulbospinal muscular atrophy congenital
     Dosage: 400 MILLILITER
     Route: 050
     Dates: start: 20190912, end: 20191107
  37. AMINO ACIDS\DEXTROSE\ELECTROLYTES NOS\SOYBEAN OIL\VITAMINS [Concomitant]
     Active Substance: AMINO ACIDS\DEXTROSE\ELECTROLYTES NOS\SOYBEAN OIL\VITAMINS
     Indication: Bulbospinal muscular atrophy congenital
     Dosage: 600 MILLILITER
     Route: 050
     Dates: start: 20190620, end: 20190801
  38. AMINO ACIDS\DEXTROSE\ELECTROLYTES NOS\SOYBEAN OIL\VITAMINS [Concomitant]
     Active Substance: AMINO ACIDS\DEXTROSE\ELECTROLYTES NOS\SOYBEAN OIL\VITAMINS
     Indication: Bulbospinal muscular atrophy congenital
     Dosage: 400 MILLILITER
     Route: 050
     Dates: start: 20200207
  39. SODIUM CHLORIDE [Concomitant]
     Active Substance: SODIUM CHLORIDE
     Indication: Prophylaxis
     Dosage: 42 GRAM
     Route: 065
     Dates: start: 20200716
  40. SODIUM CHLORIDE [Concomitant]
     Active Substance: SODIUM CHLORIDE
     Indication: Prophylaxis
     Dosage: 20 MILLILITER
     Route: 050
     Dates: start: 20191107
  41. SODIUM CHLORIDE [Concomitant]
     Active Substance: SODIUM CHLORIDE
     Indication: Prophylaxis
  42. SODIUM CHLORIDE [Concomitant]
     Active Substance: SODIUM CHLORIDE
     Indication: Prophylaxis
     Dosage: 9 GRAM
     Route: 065
     Dates: end: 20171101
  43. SODIUM CHLORIDE [Concomitant]
     Active Substance: SODIUM CHLORIDE
     Indication: Prophylaxis
     Dosage: 3 GRAM
     Route: 065
     Dates: start: 20171116, end: 20180214
  44. SODIUM CHLORIDE [Concomitant]
     Active Substance: SODIUM CHLORIDE
     Indication: Prophylaxis
     Dosage: 7.5 MILLILITER
     Route: 050
     Dates: end: 20190801
  45. SODIUM CHLORIDE [Concomitant]
     Active Substance: SODIUM CHLORIDE
     Indication: Prophylaxis
  46. SODIUM CHLORIDE [Concomitant]
     Active Substance: SODIUM CHLORIDE
     Indication: Prophylaxis
  47. BISOLVON [Concomitant]
     Active Substance: BROMHEXINE HYDROCHLORIDE
     Indication: Bulbospinal muscular atrophy congenital
     Dosage: 3 MILLILITER
     Route: 050
     Dates: end: 20190309
  48. BISOLVON [Concomitant]
     Active Substance: BROMHEXINE HYDROCHLORIDE
     Indication: Bulbospinal muscular atrophy congenital
     Dosage: 3 MILLILITER
     Route: 050
     Dates: start: 20190912
  49. BISOLVON [Concomitant]
     Active Substance: BROMHEXINE HYDROCHLORIDE
     Indication: Bulbospinal muscular atrophy congenital
  50. PROCATEROL HYDROCHLORIDE [Concomitant]
     Active Substance: PROCATEROL HYDROCHLORIDE
     Indication: Bulbospinal muscular atrophy congenital
     Dosage: 1.5 MILLILITER
     Route: 050
     Dates: end: 20180201
  51. PROCATEROL HYDROCHLORIDE [Concomitant]
     Active Substance: PROCATEROL HYDROCHLORIDE
     Indication: Bulbospinal muscular atrophy congenital
  52. PROCATEROL HYDROCHLORIDE [Concomitant]
     Active Substance: PROCATEROL HYDROCHLORIDE
     Indication: Bulbospinal muscular atrophy congenital
  53. PROCATEROL HYDROCHLORIDE [Concomitant]
     Active Substance: PROCATEROL HYDROCHLORIDE
     Indication: Bulbospinal muscular atrophy congenital
  54. PROCATEROL HYDROCHLORIDE [Concomitant]
     Active Substance: PROCATEROL HYDROCHLORIDE
     Indication: Bulbospinal muscular atrophy congenital
  55. PROCATEROL HYDROCHLORIDE [Concomitant]
     Active Substance: PROCATEROL HYDROCHLORIDE
     Indication: Bulbospinal muscular atrophy congenital
  56. PROCATEROL HYDROCHLORIDE [Concomitant]
     Active Substance: PROCATEROL HYDROCHLORIDE
     Indication: Bulbospinal muscular atrophy congenital
  57. PROCATEROL HYDROCHLORIDE [Concomitant]
     Active Substance: PROCATEROL HYDROCHLORIDE
     Indication: Bulbospinal muscular atrophy congenital
  58. CEFDITOREN PIVOXIL [Concomitant]
     Active Substance: CEFDITOREN PIVOXIL
     Indication: Bulbospinal muscular atrophy congenital
     Dosage: 3 GRAM
     Route: 065
     Dates: end: 20180402
  59. CEFDITOREN PIVOXIL [Concomitant]
     Active Substance: CEFDITOREN PIVOXIL
     Indication: Bulbospinal muscular atrophy congenital
     Dosage: 100 MILLIGRAM
     Route: 065
     Dates: start: 20190124, end: 20190130
  60. JUVELA [Concomitant]
     Active Substance: .ALPHA.-TOCOPHEROL\RETINOL
     Indication: Chillblains
  61. JUVELA [Concomitant]
     Active Substance: .ALPHA.-TOCOPHEROL\RETINOL
     Indication: Chillblains
     Dosage: UNK
     Route: 065
  62. JUVELA [Concomitant]
     Active Substance: .ALPHA.-TOCOPHEROL\RETINOL
     Indication: Chillblains
     Dosage: UNK
     Route: 065
  63. JUVELA [Concomitant]
     Active Substance: .ALPHA.-TOCOPHEROL\RETINOL
     Indication: Chillblains
  64. JUVELA [Concomitant]
     Active Substance: .ALPHA.-TOCOPHEROL\RETINOL
     Indication: Chillblains
  65. JUVELA [Concomitant]
     Active Substance: .ALPHA.-TOCOPHEROL\RETINOL
     Indication: Chillblains
  66. JUVELA [Concomitant]
     Active Substance: .ALPHA.-TOCOPHEROL\RETINOL
     Indication: Chillblains
     Dosage: UNK
     Route: 065
  67. JUVELA [Concomitant]
     Active Substance: .ALPHA.-TOCOPHEROL\RETINOL
     Indication: Chillblains
  68. JUVELA [Concomitant]
     Active Substance: .ALPHA.-TOCOPHEROL\RETINOL
     Indication: Chillblains
     Dosage: UNK
     Route: 065
  69. JUVELA [Concomitant]
     Active Substance: .ALPHA.-TOCOPHEROL\RETINOL
     Indication: Chillblains
     Dosage: UNK
     Route: 065
  70. JUVELA [Concomitant]
     Active Substance: .ALPHA.-TOCOPHEROL\RETINOL
     Indication: Chillblains
     Dosage: UNK
     Route: 065
  71. JUVELA [Concomitant]
     Active Substance: .ALPHA.-TOCOPHEROL\RETINOL
     Indication: Chillblains
     Dosage: UNK
     Route: 065
  72. JUVELA [Concomitant]
     Active Substance: .ALPHA.-TOCOPHEROL\RETINOL
     Indication: Chillblains
  73. JUVELA [Concomitant]
     Active Substance: .ALPHA.-TOCOPHEROL\RETINOL
     Indication: Chillblains
  74. UREA [Concomitant]
     Active Substance: UREA
     Indication: Xeroderma
     Dosage: UNK
     Route: 065
  75. UREA [Concomitant]
     Active Substance: UREA
     Indication: Xeroderma
     Dosage: UNK
     Route: 065
  76. UREA [Concomitant]
     Active Substance: UREA
     Indication: Xeroderma
     Dosage: UNK
     Route: 065
  77. UREA [Concomitant]
     Active Substance: UREA
     Indication: Xeroderma
     Dosage: UNK
     Route: 065
  78. UREA [Concomitant]
     Active Substance: UREA
     Indication: Xeroderma
     Dosage: UNK
     Route: 065
  79. UREA [Concomitant]
     Active Substance: UREA
     Indication: Xeroderma
     Dosage: UNK
     Route: 065
  80. UREA [Concomitant]
     Active Substance: UREA
     Indication: Xeroderma
     Dosage: UNK
     Route: 065
  81. NIZORAL [Concomitant]
     Active Substance: KETOCONAZOLE
     Indication: Seborrhoeic dermatitis
     Dosage: UNK
     Route: 065
     Dates: end: 20171019
  82. NIZORAL [Concomitant]
     Active Substance: KETOCONAZOLE
     Indication: Seborrhoeic dermatitis
     Dosage: UNK
     Route: 065
     Dates: end: 20171019
  83. NIZORAL [Concomitant]
     Active Substance: KETOCONAZOLE
     Indication: Seborrhoeic dermatitis
     Dosage: UNK
     Route: 065
     Dates: end: 20171019
  84. NIZORAL [Concomitant]
     Active Substance: KETOCONAZOLE
     Indication: Seborrhoeic dermatitis
     Dosage: UNK
     Route: 065
     Dates: end: 20171019
  85. NIZORAL [Concomitant]
     Active Substance: KETOCONAZOLE
     Indication: Seborrhoeic dermatitis
     Dosage: UNK
     Route: 065
     Dates: end: 20171019
  86. NIZORAL [Concomitant]
     Active Substance: KETOCONAZOLE
     Indication: Seborrhoeic dermatitis
     Dosage: UNK
     Route: 065
     Dates: end: 20171019
  87. NIZORAL [Concomitant]
     Active Substance: KETOCONAZOLE
     Indication: Seborrhoeic dermatitis
     Dosage: UNK
     Route: 065
     Dates: end: 20171019
  88. KETOPROFEN [Concomitant]
     Active Substance: KETOPROFEN
     Indication: Bulbospinal muscular atrophy congenital
     Dosage: 1 DOSAGE FORM
     Route: 065
     Dates: end: 20190404
  89. KETOPROFEN [Concomitant]
     Active Substance: KETOPROFEN
     Indication: Bulbospinal muscular atrophy congenital
  90. KETOPROFEN [Concomitant]
     Active Substance: KETOPROFEN
     Indication: Bulbospinal muscular atrophy congenital
  91. KETOPROFEN [Concomitant]
     Active Substance: KETOPROFEN
     Indication: Bulbospinal muscular atrophy congenital
  92. KETOPROFEN [Concomitant]
     Active Substance: KETOPROFEN
     Indication: Bulbospinal muscular atrophy congenital
  93. KETOPROFEN [Concomitant]
     Active Substance: KETOPROFEN
     Indication: Bulbospinal muscular atrophy congenital
  94. KETOPROFEN [Concomitant]
     Active Substance: KETOPROFEN
     Indication: Bulbospinal muscular atrophy congenital
  95. KETOPROFEN [Concomitant]
     Active Substance: KETOPROFEN
     Indication: Bulbospinal muscular atrophy congenital
  96. CLOTIAZEPAM [Concomitant]
     Active Substance: CLOTIAZEPAM
     Indication: Insomnia
     Dosage: 5 MILLIGRAM
     Route: 065
     Dates: end: 20171019
  97. DIETARY SUPPLEMENT\PROBIOTICS [Concomitant]
     Active Substance: DIETARY SUPPLEMENT\PROBIOTICS NOS
     Indication: Prophylaxis against gastrointestinal ulcer
     Dosage: 3 GRAM
     Route: 065
     Dates: end: 20180214
  98. DIETARY SUPPLEMENT\PROBIOTICS [Concomitant]
     Active Substance: DIETARY SUPPLEMENT\PROBIOTICS NOS
     Indication: Prophylaxis against gastrointestinal ulcer
     Dosage: 3 GRAM
     Route: 065
     Dates: start: 20200206, end: 20200220
  99. MAGNESIUM OXIDE [Concomitant]
     Active Substance: MAGNESIUM OXIDE
     Indication: Constipation
     Dosage: 990 MILLIGRAM
     Route: 065
     Dates: start: 20180301
  100. MAGNESIUM OXIDE [Concomitant]
     Active Substance: MAGNESIUM OXIDE
     Indication: Constipation
  101. MAGNESIUM OXIDE [Concomitant]
     Active Substance: MAGNESIUM OXIDE
     Indication: Constipation
  102. MAGNESIUM OXIDE [Concomitant]
     Active Substance: MAGNESIUM OXIDE
     Indication: Constipation
  103. MAGNESIUM OXIDE [Concomitant]
     Active Substance: MAGNESIUM OXIDE
     Indication: Constipation
  104. MAGNESIUM OXIDE [Concomitant]
     Active Substance: MAGNESIUM OXIDE
     Indication: Constipation
  105. MAGNESIUM OXIDE [Concomitant]
     Active Substance: MAGNESIUM OXIDE
     Indication: Constipation
  106. MAGNESIUM OXIDE [Concomitant]
     Active Substance: MAGNESIUM OXIDE
     Indication: Constipation
  107. HYALURONATE SODIUM [Concomitant]
     Active Substance: HYALURONATE SODIUM
     Indication: Dry eye
     Dosage: 5 MILLILITER
     Route: 047
  108. DENOSUMAB [Concomitant]
     Active Substance: DENOSUMAB
     Indication: Bulbospinal muscular atrophy congenital
     Dosage: 1 MILLILITER
     Route: 050
     Dates: start: 20180104
  109. SODIUM BICARBONATE\SODIUM PHOSPHATE, MONOBASIC [Concomitant]
     Active Substance: SODIUM BICARBONATE\SODIUM PHOSPHATE, MONOBASIC
     Indication: Constipation
     Dosage: 1 DOSAGE FORM
     Route: 054
     Dates: start: 20180517, end: 20191018
  110. SODIUM BICARBONATE\SODIUM PHOSPHATE, MONOBASIC [Concomitant]
     Active Substance: SODIUM BICARBONATE\SODIUM PHOSPHATE, MONOBASIC
     Indication: Constipation
  111. SODIUM BICARBONATE\SODIUM PHOSPHATE, MONOBASIC [Concomitant]
     Active Substance: SODIUM BICARBONATE\SODIUM PHOSPHATE, MONOBASIC
     Indication: Constipation
  112. SODIUM BICARBONATE\SODIUM PHOSPHATE, MONOBASIC [Concomitant]
     Active Substance: SODIUM BICARBONATE\SODIUM PHOSPHATE, MONOBASIC
     Indication: Constipation
  113. SODIUM BICARBONATE\SODIUM PHOSPHATE, MONOBASIC [Concomitant]
     Active Substance: SODIUM BICARBONATE\SODIUM PHOSPHATE, MONOBASIC
     Indication: Constipation
  114. SODIUM BICARBONATE\SODIUM PHOSPHATE, MONOBASIC [Concomitant]
     Active Substance: SODIUM BICARBONATE\SODIUM PHOSPHATE, MONOBASIC
     Indication: Constipation
  115. SODIUM BICARBONATE\SODIUM PHOSPHATE, MONOBASIC [Concomitant]
     Active Substance: SODIUM BICARBONATE\SODIUM PHOSPHATE, MONOBASIC
     Indication: Constipation
  116. SODIUM BICARBONATE\SODIUM PHOSPHATE, MONOBASIC [Concomitant]
     Active Substance: SODIUM BICARBONATE\SODIUM PHOSPHATE, MONOBASIC
     Indication: Constipation
  117. PETROLATUM [Concomitant]
     Active Substance: PETROLATUM
     Indication: Xeroderma
     Dosage: 100 GRAM
     Route: 065
     Dates: start: 20200917
  118. PETROLATUM [Concomitant]
     Active Substance: PETROLATUM
     Indication: Xeroderma
     Dosage: UNK
     Route: 065
  119. PETROLATUM [Concomitant]
     Active Substance: PETROLATUM
     Indication: Xeroderma
     Dosage: UNK
     Route: 065
  120. PETROLATUM [Concomitant]
     Active Substance: PETROLATUM
     Indication: Xeroderma
     Dosage: UNK
     Route: 065
  121. PETROLATUM [Concomitant]
     Active Substance: PETROLATUM
     Indication: Xeroderma
     Dosage: UNK
     Route: 065
  122. PETROLATUM [Concomitant]
     Active Substance: PETROLATUM
     Indication: Xeroderma
     Dosage: UNK
     Route: 065
  123. PETROLATUM [Concomitant]
     Active Substance: PETROLATUM
     Indication: Xeroderma
     Dosage: UNK
     Route: 065
  124. PETROLATUM [Concomitant]
     Active Substance: PETROLATUM
     Indication: Xeroderma
     Dosage: UNK
     Route: 065
  125. AMPICILLIN SODIUM\SULBACTAM SODIUM [Concomitant]
     Active Substance: AMPICILLIN SODIUM\SULBACTAM SODIUM
     Indication: Pneumonia
     Dosage: 1.5 GRAM
     Route: 050
     Dates: start: 20180402, end: 20180405
  126. ROCEPHIN [Concomitant]
     Active Substance: CEFTRIAXONE SODIUM
     Indication: Pneumonia
     Dosage: 1 GRAM
     Route: 050
     Dates: start: 20180402, end: 20180405
  127. CALCIUM GLUCONATE\DEXTROSE\MAGNESIUM CHLORIDE\POTASSIUM CHLORIDE\SODIU [Concomitant]
     Active Substance: CALCIUM GLUCONATE\DEXTROSE\MAGNESIUM CHLORIDE\POTASSIUM CHLORIDE\SODIUM ACETATE\SODIUM CHLORIDE\TRIS
     Indication: Pneumonia
     Dosage: 500 MILLILITER
     Route: 050
     Dates: start: 20180406, end: 20180409
  128. MAXIPIME [Concomitant]
     Active Substance: CEFEPIME HYDROCHLORIDE
     Indication: Pneumonia
     Dosage: 1 GRAM
     Route: 050
     Dates: start: 20180406, end: 20180409
  129. MEROPENEM [Concomitant]
     Active Substance: MEROPENEM
     Indication: Pneumonia
     Dosage: 500 MILLIGRAM
     Route: 050
     Dates: start: 20180411, end: 20180413
  130. CALONAL [Concomitant]
     Active Substance: ACETAMINOPHEN
     Indication: Nasopharyngitis
     Dosage: 200 MILLIGRAM
     Route: 065
     Dates: end: 20180419
  131. PREDONINE [Concomitant]
     Active Substance: PREDNISOLONE
     Indication: Product used for unknown indication
     Dosage: 5 MILLIGRAM
     Route: 065
     Dates: end: 20180705
  132. Travelmin [Concomitant]
     Indication: Vertigo
     Dosage: UNK
     Route: 065
     Dates: start: 20190821, end: 20190904
  133. Travelmin [Concomitant]
     Indication: Vertigo
     Dosage: UNK
     Route: 065
     Dates: start: 20190821, end: 20190904
  134. Travelmin [Concomitant]
     Indication: Vertigo
     Dosage: UNK
     Route: 065
     Dates: start: 20190821, end: 20190904
  135. Travelmin [Concomitant]
     Indication: Vertigo
     Dosage: UNK
     Route: 065
     Dates: start: 20190821, end: 20190904
  136. Travelmin [Concomitant]
     Indication: Vertigo
     Dosage: UNK
     Route: 065
     Dates: start: 20190821, end: 20190904
  137. Travelmin [Concomitant]
     Indication: Vertigo
     Dosage: UNK
     Route: 065
     Dates: start: 20190821, end: 20190904
  138. DIPHENIDOL HYDROCHLORIDE [Concomitant]
     Active Substance: DIPHENIDOL HYDROCHLORIDE
     Indication: Vertigo
     Dosage: 25 MILLIGRAM
     Route: 065
     Dates: start: 20190821, end: 20190904
  139. GLYCERIN [Concomitant]
     Active Substance: GLYCERIN
     Indication: Bulbospinal muscular atrophy congenital
     Dosage: 60 MILLILITER
     Route: 065
     Dates: start: 20181206, end: 20181206
  140. ENORAS [Concomitant]
     Indication: Bulbospinal muscular atrophy congenital
     Dosage: 375 MILLILITER
     Route: 050
     Dates: start: 20190620, end: 20191017
  141. PREDNISOLONE [Concomitant]
     Active Substance: PREDNISOLONE
     Indication: Nephrotic syndrome
     Dosage: 6 MILLIGRAM
     Route: 065
     Dates: start: 20180705, end: 20181206
  142. PREDNISOLONE [Concomitant]
     Active Substance: PREDNISOLONE
     Indication: Nephrotic syndrome
     Dosage: 1 MILLIGRAM
     Route: 065
     Dates: start: 20180215, end: 20180516
  143. PREDNISOLONE [Concomitant]
     Active Substance: PREDNISOLONE
     Indication: Nephrotic syndrome
     Dosage: 7 MILLIGRAM
     Route: 065
  144. PREDNISOLONE [Concomitant]
     Active Substance: PREDNISOLONE
     Indication: Nephrotic syndrome
     Dosage: 8 MILLIGRAM
     Route: 065
  145. PREDNISOLONE [Concomitant]
     Active Substance: PREDNISOLONE
     Indication: Nephrotic syndrome
     Dosage: 2 MILLIGRAM
     Route: 065
     Dates: end: 20180214
  146. PREDNISOLONE [Concomitant]
     Active Substance: PREDNISOLONE
     Indication: Nephrotic syndrome
     Dosage: UNK
     Route: 065
  147. PREDNISOLONE [Concomitant]
     Active Substance: PREDNISOLONE
     Indication: Nephrotic syndrome
     Dosage: 3 MILLIGRAM
     Route: 065
     Dates: start: 20180517, end: 20180704
  148. CHLORPROMAZINE [Concomitant]
     Active Substance: CHLORPROMAZINE
     Indication: Product used for unknown indication
     Dosage: 0.6 GRAM
     Route: 065
     Dates: start: 20191017, end: 20200902
  149. AMINO ACIDS\DEXTROSE\ELECTROLYTES NOS\SOYBEAN OIL\VITAMINS [Concomitant]
     Active Substance: AMINO ACIDS\DEXTROSE\ELECTROLYTES NOS\SOYBEAN OIL\VITAMINS
     Indication: Bulbospinal muscular atrophy congenital
     Dosage: 600 MILLILITER
     Route: 050
     Dates: start: 20190620, end: 20190801
  150. AMINO ACIDS\DEXTROSE\ELECTROLYTES NOS\SOYBEAN OIL\VITAMINS [Concomitant]
     Active Substance: AMINO ACIDS\DEXTROSE\ELECTROLYTES NOS\SOYBEAN OIL\VITAMINS
     Indication: Bulbospinal muscular atrophy congenital
     Dosage: 2000 MILLILITER
     Route: 050
     Dates: start: 20180405, end: 20180418
  151. AMINO ACIDS\DEXTROSE\ELECTROLYTES NOS\SOYBEAN OIL\VITAMINS [Concomitant]
     Active Substance: AMINO ACIDS\DEXTROSE\ELECTROLYTES NOS\SOYBEAN OIL\VITAMINS
     Indication: Bulbospinal muscular atrophy congenital
     Dosage: 200 MILLILITER
     Route: 050
     Dates: start: 20191219, end: 20200206
  152. AMINO ACIDS\DEXTROSE\ELECTROLYTES NOS\SOYBEAN OIL\VITAMINS [Concomitant]
     Active Substance: AMINO ACIDS\DEXTROSE\ELECTROLYTES NOS\SOYBEAN OIL\VITAMINS
     Indication: Bulbospinal muscular atrophy congenital
     Dosage: 400 MILLILITER
     Route: 050
     Dates: start: 20200207
  153. AMINO ACIDS\DEXTROSE\ELECTROLYTES NOS\SOYBEAN OIL\VITAMINS [Concomitant]
     Active Substance: AMINO ACIDS\DEXTROSE\ELECTROLYTES NOS\SOYBEAN OIL\VITAMINS
     Indication: Bulbospinal muscular atrophy congenital
     Dosage: 400 MILLILITER
     Route: 050
     Dates: start: 20190912, end: 20191107
  154. AMINO ACIDS\DEXTROSE\ELECTROLYTES NOS\SOYBEAN OIL\VITAMINS [Concomitant]
     Active Substance: AMINO ACIDS\DEXTROSE\ELECTROLYTES NOS\SOYBEAN OIL\VITAMINS
     Indication: Bulbospinal muscular atrophy congenital
     Dosage: 1600 MILLILITER
     Route: 050
     Dates: end: 20171206
  155. AMINO ACIDS\DEXTROSE\ELECTROLYTES NOS\SOYBEAN OIL\VITAMINS [Concomitant]
     Active Substance: AMINO ACIDS\DEXTROSE\ELECTROLYTES NOS\SOYBEAN OIL\VITAMINS
     Indication: Bulbospinal muscular atrophy congenital
     Dosage: 1000 MILLILITER
     Route: 050
     Dates: start: 20180621, end: 20190620
  156. AMINO ACIDS\DEXTROSE\ELECTROLYTES NOS\SOYBEAN OIL\VITAMINS [Concomitant]
     Active Substance: AMINO ACIDS\DEXTROSE\ELECTROLYTES NOS\SOYBEAN OIL\VITAMINS
     Indication: Bulbospinal muscular atrophy congenital
     Dosage: 1000 MILLILITER
     Route: 050
     Dates: start: 20171221, end: 20180404
  157. AMINO ACIDS\DEXTROSE\ELECTROLYTES NOS\SOYBEAN OIL\VITAMINS [Concomitant]
     Active Substance: AMINO ACIDS\DEXTROSE\ELECTROLYTES NOS\SOYBEAN OIL\VITAMINS
     Indication: Bulbospinal muscular atrophy congenital
     Dosage: 1400 MILLILITER
     Route: 050
     Dates: start: 20180419, end: 20180506

REACTIONS (14)
  - Nephrotic syndrome [Recovered/Resolved]
  - Delirium [Not Recovered/Not Resolved]
  - Gastrostomy tube site complication [Not Recovered/Not Resolved]
  - Agitation [Not Recovered/Not Resolved]
  - Condition aggravated [Not Recovered/Not Resolved]
  - Upper respiratory tract inflammation [Recovered/Resolved]
  - Rhinitis allergic [Recovered/Resolved]
  - Chillblains [Recovered/Resolved]
  - Tinea pedis [Recovered/Resolved]
  - Agitation [Not Recovered/Not Resolved]
  - Chillblains [Recovered/Resolved]
  - Delirium [Not Recovered/Not Resolved]
  - Condition aggravated [Not Recovered/Not Resolved]
  - Stoma site reaction [Recovered/Resolved]

NARRATIVE: CASE EVENT DATE: 20171221
